FAERS Safety Report 23409610 (Version 2)
Quarter: 2024Q1

REPORT INFORMATION
  Report Type: Spontaneous
  Country: US (occurrence: US)
  Receive Date: 20240117
  Receipt Date: 20240308
  Transmission Date: 20240410
  Serious: No
  Sender: FDA-Public Use
  Company Number: US-PFIZER INC-202400012789

PATIENT
  Age: 81 Year
  Sex: Female
  Weight: 48.98 kg

DRUGS (1)
  1. PAXLOVID [Suspect]
     Active Substance: NIRMATRELVIR\RITONAVIR
     Indication: COVID-19 treatment
     Dosage: 150 MG
     Dates: start: 20230108

REACTIONS (7)
  - Hypoaesthesia oral [Unknown]
  - Paraesthesia oral [Unknown]
  - Dysgeusia [Unknown]
  - Drug intolerance [Unknown]
  - Haemorrhagic diathesis [Unknown]
  - Oropharyngeal pain [Unknown]
  - Incorrect dose administered [Unknown]
